FAERS Safety Report 18139363 (Version 1)
Quarter: 2020Q3

REPORT INFORMATION
  Report Type: Other
  Country: CN (occurrence: CN)
  Receive Date: 20200812
  Receipt Date: 20200812
  Transmission Date: 20201103
  Serious: Yes (Other)
  Sender: FDA-Public Use
  Company Number: CN-GE HEALTHCARE LIFE SCIENCES-2020CSU003483

PATIENT

DRUGS (2)
  1. OMNIPAQUE [Suspect]
     Active Substance: IOHEXOL
     Indication: CYSTOGRAM
     Dosage: 40 ML, SINGLE
     Route: 066
     Dates: start: 20200730, end: 20200730
  2. OMNIPAQUE [Suspect]
     Active Substance: IOHEXOL
     Indication: URETHRAL STENOSIS

REACTIONS (3)
  - Flushing [Unknown]
  - Pruritus [Unknown]
  - Urticaria [Unknown]

NARRATIVE: CASE EVENT DATE: 20200730
